FAERS Safety Report 10984408 (Version 2)
Quarter: 2015Q2

REPORT INFORMATION
  Report Type: Spontaneous
  Country: FR (occurrence: FR)
  Receive Date: 20150403
  Receipt Date: 20150415
  Transmission Date: 20150821
  Serious: Yes (Life-Threatening, Other)
  Sender: FDA-Public Use
  Company Number: FR-TEVA-551429ISR

PATIENT
  Age: 57 Year
  Sex: Female
  Weight: 63 kg

DRUGS (9)
  1. BICNU [Suspect]
     Active Substance: CARMUSTINE
     Dosage: 300 MG/M2 DAILY; SIX DAYS BEFORE AUTOLOGOUS TRANSPLANTATION OF HEMATOPOIETIC STEM CELLS
     Dates: start: 20141128, end: 20141128
  2. ETOPOSIDE TEVA [Suspect]
     Active Substance: ETOPOSIDE
     Dates: start: 20141128, end: 20141201
  3. KYTRIL [Suspect]
     Active Substance: GRANISETRON HYDROCHLORIDE
     Indication: PROPHYLAXIS OF NAUSEA AND VOMITING
  4. EMEND [Concomitant]
     Active Substance: APREPITANT
     Indication: VOMITING
  5. ALKERAN [Suspect]
     Active Substance: MELPHALAN
     Dosage: 140 MG/M2 DAILY;
     Dates: start: 20141202
  6. ZEVALIN [Suspect]
     Active Substance: IBRITUMOMAB TIUXETAN
     Dosage: FOURTEEN DAYS BEFORE AUTOLOGOUS TRANSPLANTATION OF HEMATOPOIETIC STEM CELLS
     Dates: start: 20141120, end: 20141120
  7. SOLU-MEDROL [Concomitant]
     Active Substance: METHYLPREDNISOLONE SODIUM SUCCINATE
     Indication: VOMITING
  8. ZEVALIN [Suspect]
     Active Substance: IBRITUMOMAB TIUXETAN
     Dosage: TWENTY-ONE DAYS BEFORE AUTOLOGOUS TRANSPLANTATION OF HEMATOPOIETIC STEM CELLS
     Dates: start: 20141113, end: 20141113
  9. ARACYTINE [Suspect]
     Active Substance: CYTARABINE
     Dates: start: 20141128, end: 20141201

REACTIONS (17)
  - Sodium retention [Unknown]
  - Fluid retention [Recovered/Resolved]
  - Diarrhoea [Recovered/Resolved]
  - Stomatitis [Recovered/Resolved]
  - Oedema [Recovered/Resolved]
  - Cholestasis [Recovering/Resolving]
  - Venoocclusive disease [Unknown]
  - Febrile bone marrow aplasia [Recovered/Resolved]
  - Generalised oedema [Recovered/Resolved]
  - Pyelonephritis acute [Recovering/Resolving]
  - Vomiting [Recovered/Resolved]
  - Nausea [Recovered/Resolved]
  - Aplasia [Recovered/Resolved]
  - Pyrexia [Recovered/Resolved]
  - Gastrointestinal toxicity [Recovered/Resolved]
  - Stomatitis [Recovered/Resolved]
  - Transaminases increased [Recovered/Resolved]

NARRATIVE: CASE EVENT DATE: 20141205
